FAERS Safety Report 14563027 (Version 2)
Quarter: 2018Q3

REPORT INFORMATION
  Report Type: Spontaneous
  Country: US (occurrence: US)
  Receive Date: 20180222
  Receipt Date: 20180705
  Transmission Date: 20181010
  Serious: Yes (Other)
  Sender: FDA-Public Use
  Company Number: US-JNJFOC-20180219319

PATIENT

DRUGS (1)
  1. IBRUTINIB [Suspect]
     Active Substance: IBRUTINIB
     Indication: CHRONIC LYMPHOCYTIC LEUKAEMIA
     Route: 048

REACTIONS (39)
  - Sepsis [Unknown]
  - Anaemia [Unknown]
  - Intestinal perforation [Unknown]
  - Vomiting [Unknown]
  - Pneumonitis [Unknown]
  - Muscle spasms [Unknown]
  - Oropharyngeal pain [Unknown]
  - Laboratory test abnormal [Unknown]
  - Product use in unapproved indication [Unknown]
  - Dyspnoea [Unknown]
  - Pneumonia [Unknown]
  - Thrombocytopenia [Unknown]
  - Fatigue [Unknown]
  - Nausea [Unknown]
  - Off label use [Unknown]
  - Decreased appetite [Unknown]
  - Dizziness [Unknown]
  - Diarrhoea [Unknown]
  - Asthenia [Unknown]
  - Upper respiratory tract infection [Unknown]
  - Headache [Unknown]
  - Petechiae [Unknown]
  - Rash [Unknown]
  - Haemorrhage [Unknown]
  - Stomatitis [Unknown]
  - Dyspepsia [Unknown]
  - Pyrexia [Unknown]
  - Haematology test abnormal [Unknown]
  - Cough [Unknown]
  - Neutropenia [Unknown]
  - Atrial fibrillation [Unknown]
  - Colitis [Unknown]
  - Musculoskeletal pain [Unknown]
  - Arthralgia [Unknown]
  - Chills [Unknown]
  - Oedema peripheral [Unknown]
  - Abdominal pain [Unknown]
  - Bronchitis [Unknown]
  - Sinusitis [Unknown]
